FAERS Safety Report 5603393-2 (Version None)
Quarter: 2008Q1

REPORT INFORMATION
  Report Type: 
  Country: None (occurrence: None)
  Receive Date: 20080123
  Receipt Date: 20071221
  Transmission Date: 20080703
  Serious: Yes (Other)
  Sender: FDA-Public Use
  Company Number: S07-GER-06070-01

PATIENT
  Age: 24 Year
  Sex: Female
  Weight: 122 kg

DRUGS (10)
  1. CITALOPRAM HYDROBROMIDE [Suspect]
     Indication: SCHIZOPHRENIA, DISORGANISED TYPE
     Route: 048
     Dates: start: 20060830
  2. TAXILAN (PERAZINE) [Suspect]
     Indication: SCHIZOPHRENIA, DISORGANISED TYPE
     Dosage: 50 MG QD PO
     Dates: start: 20060804, end: 20061011
  3. TAXILAN (PERAZINE) [Suspect]
     Indication: SCHIZOPHRENIA, DISORGANISED TYPE
     Dosage: 25 MG QD PO
     Route: 048
     Dates: start: 20061012, end: 20061118
  4. TAXILAN (PERAZINE) [Suspect]
     Indication: SCHIZOPHRENIA, DISORGANISED TYPE
     Dosage: 50 MG QD PO
     Route: 048
     Dates: start: 20061109, end: 20061120
  5. RISPERDAL [Suspect]
     Indication: SCHIZOPHRENIA, DISORGANISED TYPE
     Dosage: 6 MG QD PO
     Route: 048
     Dates: start: 20061021
  6. RISPERDAL [Suspect]
     Indication: SCHIZOPHRENIA, DISORGANISED TYPE
     Dosage: 5 MG QD PO
     Route: 048
     Dates: start: 20061019, end: 20061020
  7. RISPERDAL [Suspect]
     Indication: SCHIZOPHRENIA, DISORGANISED TYPE
     Dosage: 4 MG QD PO
     Route: 048
     Dates: start: 20060830, end: 20061018
  8. RISPERDAL [Suspect]
     Indication: SCHIZOPHRENIA, DISORGANISED TYPE
     Dosage: 3 MG QD PO
     Route: 048
     Dates: start: 20060822, end: 20060829
  9. RISPERDAL [Suspect]
     Indication: SCHIZOPHRENIA, DISORGANISED TYPE
     Dosage: 2 MG QD PO
     Route: 048
     Dates: start: 20060809, end: 20060821
  10. ABILIFY [Concomitant]

REACTIONS (2)
  - BLOOD GLUCOSE INCREASED [None]
  - WEIGHT INCREASED [None]
